FAERS Safety Report 4323539-6 (Version None)
Quarter: 2004Q1

REPORT INFORMATION
  Report Type: 
  Country: None (occurrence: None)
  Receive Date: 20040325
  Receipt Date: 20031016
  Transmission Date: 20041129
  Serious: Yes (Hospitalization, Disabling)
  Sender: FDA-Public Use
  Company Number: WAES 0310USA01958

PATIENT
  Age: 51 Year
  Sex: Male
  Weight: 105 kg

DRUGS (23)
  1. [THERAPY UNSPECIFIED] [Concomitant]
     Dates: start: 19740101
  2. TYLENOL (CAPLET) [Concomitant]
     Indication: PAIN
     Dates: start: 19680101
  3. PROVENTIL [Concomitant]
     Indication: ASTHMA
  4. ALLOPURINOL [Concomitant]
     Indication: PROPHYLAXIS
  5. ELAVIL [Concomitant]
     Route: 048
  6. FIORINAL W/CODEINE [Concomitant]
  7. AZATHIOPRINE [Concomitant]
  8. TEGRETOL [Concomitant]
     Indication: CONVULSION
     Dates: start: 19700101
  9. TEGRETOL [Concomitant]
     Dates: start: 19700101
  10. TEGRETOL [Concomitant]
     Dates: start: 19700101
  11. ZYRTEC [Concomitant]
     Indication: HYPERSENSITIVITY
  12. ADVIL [Concomitant]
     Dates: start: 19740101
  13. REMICADE [Concomitant]
     Route: 042
     Dates: start: 20000101
  14. PURINETHOL [Concomitant]
  15. METHOTREXATE [Concomitant]
  16. PRILOSEC [Concomitant]
     Indication: GASTROOESOPHAGEAL REFLUX DISEASE
  17. K-DUR 10 [Concomitant]
     Indication: HYPOKALAEMIA
  18. PREDNISONE [Concomitant]
  19. VIOXX [Suspect]
     Indication: RHEUMATOID ARTHRITIS
     Route: 048
     Dates: start: 20000101, end: 20001201
  20. VIOXX [Suspect]
     Route: 048
     Dates: start: 20000101, end: 20001201
  21. VIOXX [Suspect]
     Route: 048
     Dates: end: 20020301
  22. VIOXX [Suspect]
     Dates: start: 20010312
  23. TRIAMTERENE [Concomitant]
     Indication: HYPERTENSION
     Dates: start: 19940101

REACTIONS (27)
  - ATRIAL FIBRILLATION [None]
  - BLOOD POTASSIUM DECREASED [None]
  - BLOOD SODIUM DECREASED [None]
  - BREAST CYST [None]
  - CEREBROVASCULAR ACCIDENT [None]
  - CHRONIC SINUSITIS [None]
  - COLONIC POLYP [None]
  - CONTUSION [None]
  - DEPRESSION [None]
  - DIVERTICULUM INTESTINAL [None]
  - FALL [None]
  - FELTY'S SYNDROME [None]
  - GASTROOESOPHAGEAL REFLUX DISEASE [None]
  - HAEMORRHOIDAL HAEMORRHAGE [None]
  - HERPES ZOSTER [None]
  - HIATUS HERNIA [None]
  - HYPERTENSION [None]
  - HYPERTONIC BLADDER [None]
  - KERATITIS HERPETIC [None]
  - MITRAL VALVE INCOMPETENCE [None]
  - PAIN [None]
  - PANCYTOPENIA [None]
  - PYREXIA [None]
  - RENAL PAIN [None]
  - RHEUMATOID ARTHRITIS [None]
  - RIB FRACTURE [None]
  - VIRAL INFECTION [None]
